FAERS Safety Report 9239031 (Version 4)
Quarter: 2013Q4

REPORT INFORMATION
  Report Type: Report from Study
  Country: DE (occurrence: DE)
  Receive Date: 20130418
  Receipt Date: 20131004
  Transmission Date: 20140711
  Serious: Yes (Hospitalization)
  Sender: FDA-Public Use
  Company Number: DE-TEVA-396743GER

PATIENT
  Sex: Male

DRUGS (47)
  1. CYCLOPHOSPHAMIDE [Suspect]
     Dosage: 1500 MILLIGRAM DAILY;
     Route: 042
     Dates: start: 20130814
  2. RITUXIMAB [Suspect]
     Indication: B-CELL LYMPHOMA
     Dosage: 746 MILLIGRAM DAILY;
     Route: 042
     Dates: start: 20130311, end: 20130311
  3. RITUXIMAB [Suspect]
     Route: 042
     Dates: start: 20130402, end: 20130402
  4. RITUXIMAB [Suspect]
     Dosage: 697 MILLIGRAM DAILY;
     Route: 042
     Dates: start: 20130514, end: 20130514
  5. RITUXIMAB [Suspect]
     Dosage: 675 MILLIGRAM DAILY;
     Route: 042
     Dates: start: 20130604, end: 20130604
  6. RITUXIMAB [Suspect]
     Dosage: 750 MILLIGRAM DAILY;
     Route: 042
     Dates: start: 20130813
  7. PEGFILGRASTIM [Suspect]
     Indication: B-CELL LYMPHOMA
     Dosage: 6 MILLIGRAM DAILY;
     Route: 058
     Dates: start: 20130315, end: 20130315
  8. PEGFILGRASTIM [Suspect]
     Dosage: 6 MILLIGRAM DAILY;
     Route: 058
     Dates: start: 20130406, end: 20130406
  9. PEGFILGRASTIM [Suspect]
     Dosage: 6 MILLIGRAM DAILY;
     Route: 058
     Dates: start: 20130606, end: 20130606
  10. PEGFILGRASTIM [Suspect]
     Dosage: 6 MILLIGRAM DAILY; 6 MG ON DAY 4 OF EACH CYCLE
     Route: 058
     Dates: start: 20130816
  11. VALACICLOVIR [Concomitant]
     Indication: INFECTION PROPHYLAXIS
     Route: 048
  12. SULFAMETHOXAZOLE/TRIMETHOPRIM [Concomitant]
     Indication: INFECTION PROPHYLAXIS
     Route: 048
     Dates: start: 20130225
  13. LEVOFLOXACIN [Concomitant]
     Indication: INFECTION PROPHYLAXIS
     Dosage: 1000 MILLIGRAM DAILY;
     Route: 048
     Dates: start: 20130317
  14. AMPHOTERICIN B [Concomitant]
     Indication: INFECTION PROPHYLAXIS
     Dosage: 3 DOSAGE FORMS DAILY;
     Route: 048
     Dates: start: 20130318, end: 20130319
  15. MIRTAZAPIN [Concomitant]
     Indication: DEPRESSION
     Dosage: 15 MILLIGRAM DAILY;
     Route: 048
  16. LEVOTHYROXINE SODIUM [Concomitant]
     Indication: HYPOTHYROIDISM
     Dosage: 25 MICROGRAM DAILY;
     Route: 048
  17. PANTOPRAZOL NATRIUM [Concomitant]
     Indication: PROPHYLAXIS AGAINST GASTROINTESTINAL ULCER
     Dosage: 40 MILLIGRAM DAILY;
     Route: 048
  18. METFORMIN [Concomitant]
     Indication: DIABETES MELLITUS
     Dosage: 1 GRAM DAILY;
  19. HYDROCHLOROTHIAZID/RAMIPRIL [Concomitant]
     Indication: HYPERTENSION
     Dosage: 5 MILLIGRAM DAILY;
     Route: 048
  20. METAMIZOL SODIUM [Concomitant]
     Indication: PAIN
     Route: 048
     Dates: start: 20130730
  21. DELTAPARINNATRIUM [Concomitant]
     Indication: PROPHYLAXIS
     Route: 058
     Dates: start: 201307
  22. HYDROCORTISONE [Concomitant]
     Indication: ADRENAL INSUFFICIENCY
     Dosage: 10 MILLIGRAM DAILY;
     Route: 048
     Dates: start: 20130730
  23. HYDROCORTISONE [Concomitant]
     Dosage: 20 MILLIGRAM DAILY;
     Route: 048
     Dates: start: 20130906
  24. FLUDROCORTISONE [Concomitant]
     Indication: ASTHMA
     Dosage: 1 MILLIGRAM DAILY;
     Route: 048
  25. THEOPHYLLIN [Concomitant]
     Indication: ASTHMA
     Dosage: 850 MILLIGRAM DAILY;
     Route: 048
  26. THEOPHYLLIN [Concomitant]
     Dosage: 500 MILLIGRAM DAILY;
     Route: 048
  27. LEVOTHYROXIN NATRIUM [Concomitant]
     Dosage: 100 MILLIGRAM DAILY;
     Route: 048
     Dates: start: 20130730
  28. DOXORUBICIN HYDROCHLORIDE [Suspect]
     Indication: B-CELL LYMPHOMA
     Dosage: 99.5 MILLIGRAM DAILY;
     Route: 042
     Dates: start: 20130312, end: 20130312
  29. DOXORUBICIN HYDROCHLORIDE [Suspect]
     Dosage: 99.5 MILLIGRAM DAILY;
     Route: 042
     Dates: start: 20130403, end: 20130403
  30. DOXORUBICIN HYDROCHLORIDE [Suspect]
     Dosage: 94 MILLIGRAM DAILY;
     Route: 042
     Dates: start: 20130515, end: 20130515
  31. DOXORUBICIN HYDROCHLORIDE [Suspect]
     Dosage: 92 MILLIGRAM DAILY;
     Route: 042
     Dates: start: 20130605, end: 20130605
  32. DOXORUBICIN HYDROCHLORIDE [Suspect]
     Dosage: 100 MILLIGRAM DAILY;
     Route: 042
     Dates: start: 20130814
  33. PREDNISONE [Suspect]
     Indication: B-CELL LYMPHOMA
     Route: 065
     Dates: start: 20130313, end: 20130317
  34. PREDNISONE [Suspect]
     Route: 065
     Dates: start: 20130403, end: 20130407
  35. PREDNISONE [Suspect]
     Route: 065
     Dates: start: 20130605, end: 20130605
  36. PREDNISONE [Suspect]
     Route: 065
     Dates: start: 20130408, end: 20130410
  37. PREDNISONE [Suspect]
     Route: 065
     Dates: start: 20130411, end: 20130413
  38. PREDNISONE [Suspect]
     Dosage: 575 MILLIGRAM DAILY;
     Route: 065
     Dates: start: 20130808, end: 20130814
  39. VINCRISTINE [Suspect]
     Indication: B-CELL LYMPHOMA
     Dosage: 2 MILLIGRAM DAILY;
     Route: 042
     Dates: start: 20130312, end: 20130312
  40. VINCRISTINE [Suspect]
     Dosage: 2 MILLIGRAM DAILY;
     Route: 042
     Dates: start: 20130403, end: 20130403
  41. VINCRISTINE [Suspect]
     Dosage: 1 MILLIGRAM DAILY;
     Route: 042
     Dates: start: 20130515, end: 20130515
  42. VINCRISTINE [Suspect]
     Dosage: 1 MILLIGRAM DAILY;
     Route: 042
     Dates: start: 20130605, end: 20130605
  43. VINCRISTINE [Suspect]
     Dosage: 1 MILLIGRAM DAILY;
     Route: 042
     Dates: start: 20130814
  44. CYCLOPHOSPHAMIDE [Suspect]
     Indication: B-CELL LYMPHOMA
     Dosage: 1492.5 MILLIGRAM DAILY;
     Route: 042
     Dates: start: 20130312, end: 20130312
  45. CYCLOPHOSPHAMIDE [Suspect]
     Dosage: 1492.5 MILLIGRAM DAILY;
     Route: 042
     Dates: start: 20130403, end: 20130403
  46. CYCLOPHOSPHAMIDE [Suspect]
     Dosage: 1410 MILLIGRAM DAILY;
     Route: 042
     Dates: start: 20130515, end: 20130515
  47. CYCLOPHOSPHAMIDE [Suspect]
     Dosage: 1380 MILLIGRAM DAILY;
     Route: 042
     Dates: start: 20130605, end: 20130605

REACTIONS (6)
  - Febrile neutropenia [Recovered/Resolved]
  - Pneumothorax [Recovered/Resolved]
  - Neutropenia [Not Recovered/Not Resolved]
  - Febrile neutropenia [Recovered/Resolved]
  - Thrombocytopenia [Unknown]
  - Febrile infection [Recovered/Resolved]
